FAERS Safety Report 4905043-7 (Version None)
Quarter: 2006Q1

REPORT INFORMATION
  Report Type: 
  Country: None (occurrence: None)
  Receive Date: 20060207
  Receipt Date: 20060207
  Transmission Date: 20060701
  Serious: Yes (Hospitalization)
  Sender: FDA-Public Use
  Company Number: None

PATIENT
  Age: 69 Year
  Sex: Male
  Weight: 95.7 kg

DRUGS (1)
  1. ENALAPRIL MALEATE [Suspect]

REACTIONS (1)
  - ANGIONEUROTIC OEDEMA [None]
